FAERS Safety Report 10159219 (Version 1)
Quarter: 2014Q2

REPORT INFORMATION
  Report Type: Spontaneous
  Country: IL (occurrence: IL)
  Receive Date: 20140508
  Receipt Date: 20140508
  Transmission Date: 20141212
  Serious: Yes (Death, Hospitalization)
  Sender: FDA-Public Use
  Company Number: IL-JNJFOC-20140417788

PATIENT
  Age: 72 Year
  Sex: Female
  Weight: 52 kg

DRUGS (14)
  1. DOXORUBICIN HYDROCHLORIDE [Suspect]
     Indication: OVARIAN CANCER
     Route: 042
     Dates: start: 20140316, end: 20140316
  2. EC145 [Suspect]
     Indication: OVARIAN CANCER
     Dosage: DAY 1,3,5,15,17 AND 19
     Route: 042
     Dates: start: 20140316, end: 20140320
  3. PLACEBO [Suspect]
     Indication: OVARIAN CANCER
     Dosage: DAY 1,3,5,15,17 AND 19
     Route: 042
     Dates: start: 20140316, end: 20140320
  4. EC20 [Suspect]
     Indication: SINGLE PHOTON EMISSION COMPUTERISED TOMOGRAM
     Dosage: 19 MILLICURIES
     Route: 042
     Dates: start: 20140310, end: 20140310
  5. FOLIC ACID [Suspect]
     Indication: SINGLE PHOTON EMISSION COMPUTERISED TOMOGRAM
     Route: 042
     Dates: start: 20140310, end: 20140310
  6. LAXADIN [Concomitant]
     Indication: CONSTIPATION
     Route: 048
  7. FENTANYL [Concomitant]
     Indication: PAIN
     Route: 062
  8. MICROPIRIN [Concomitant]
     Indication: PROPHYLAXIS
     Route: 048
     Dates: start: 2003
  9. LIPITOR [Concomitant]
     Indication: MYOCARDIAL ISCHAEMIA
     Route: 048
     Dates: start: 2003
  10. NORMITEN [Concomitant]
     Indication: MYOCARDIAL ISCHAEMIA
     Route: 048
     Dates: start: 2003
  11. B12 [Concomitant]
     Indication: SUPPLEMENTATION THERAPY
     Route: 048
     Dates: start: 2009
  12. PRAMIN [Concomitant]
     Indication: VOMITING
     Route: 042
     Dates: start: 20140318, end: 20140318
  13. DEXAMETHASONE [Concomitant]
     Indication: ASTHENIA
     Route: 042
     Dates: start: 20140324, end: 20140328
  14. ZANTAC [Concomitant]
     Indication: ASTHENIA
     Route: 042
     Dates: start: 20140325, end: 20140328

REACTIONS (4)
  - Large intestinal obstruction [Not Recovered/Not Resolved]
  - Loss of consciousness [Not Recovered/Not Resolved]
  - Ovarian cancer [Fatal]
  - Neutropenia [Recovered/Resolved]
